FAERS Safety Report 25079817 (Version 4)
Quarter: 2025Q4

REPORT INFORMATION
  Report Type: Report from Study
  Country: US (occurrence: US)
  Receive Date: 20250314
  Receipt Date: 20251114
  Transmission Date: 20260118
  Serious: Yes (Other)
  Sender: TAKEDA
  Company Number: US-BAXTER-2014BAX068463

PATIENT
  Sex: Female

DRUGS (7)
  1. HUMAN IMMUNOGLOBULIN G [Suspect]
     Active Substance: HUMAN IMMUNOGLOBULIN G
     Indication: Primary immunodeficiency syndrome
     Dosage: 8 GRAM, 1/WEEK
     Dates: start: 201407, end: 201411
  2. VONVENDI [Suspect]
     Active Substance: VON WILLEBRAND FACTOR (RECOMBINANT)
     Indication: Haemorrhage
     Dosage: 6000 INTERNATIONAL UNIT
  3. VONVENDI [Suspect]
     Active Substance: VON WILLEBRAND FACTOR (RECOMBINANT)
     Dosage: 6000 INTERNATIONAL UNIT
  4. VONVENDI [Suspect]
     Active Substance: VON WILLEBRAND FACTOR (RECOMBINANT)
     Dosage: 6000 INTERNATIONAL UNIT
  5. SUPRAX [Concomitant]
     Active Substance: CEFIXIME
     Indication: Adverse event
     Dosage: UNK UNK, QD
     Dates: start: 201410, end: 201410
  6. SUPRAX [Concomitant]
     Active Substance: CEFIXIME
     Dosage: UNK UNK, QD
     Dates: start: 201411, end: 201411
  7. MOXIFLOXACIN [Concomitant]
     Active Substance: MOXIFLOXACIN
     Indication: Adverse event
     Dosage: UNK UNK, QD
     Dates: start: 201411, end: 201411

REACTIONS (4)
  - Haemarthrosis [Unknown]
  - Haemorrhage [Recovered/Resolved]
  - Treatment failure [Unknown]
  - Menstrual disorder [Unknown]

NARRATIVE: CASE EVENT DATE: 20250220
